FAERS Safety Report 23802824 (Version 1)
Quarter: 2024Q2

REPORT INFORMATION
  Report Type: Spontaneous
  Country: US (occurrence: US)
  Receive Date: 20240501
  Receipt Date: 20240501
  Transmission Date: 20240716
  Serious: Yes (Other)
  Sender: FDA-Public Use
  Company Number: US-ACELLA PHARMACEUTICALS, LLC-2024ALO00174

PATIENT
  Age: 1 Month

DRUGS (2)
  1. GABAPENTIN [Suspect]
     Active Substance: GABAPENTIN
     Indication: Visceral pain
     Dosage: MEAN STARTING DOSE 8.6 MG/KG/DAY [PLUS/MINUS] 5.4 MG/KG/DAY; EVERY 24 HOURS
  2. GABAPENTIN [Suspect]
     Active Substance: GABAPENTIN
     Dosage: MAXIMUM DOSE WAS 21.4 MG/KG/DAY DIVIDED EVERY 8 HOURS

REACTIONS (2)
  - Bradycardia [Unknown]
  - Product use in unapproved indication [Unknown]
